FAERS Safety Report 5628576-7 (Version None)
Quarter: 2008Q1

REPORT INFORMATION
  Report Type: 
  Country: None (occurrence: None)
  Receive Date: 20080214
  Receipt Date: 20080214
  Transmission Date: 20080703
  Serious: Yes (Hospitalization)
  Sender: FDA-Public Use
  Company Number: None

PATIENT
  Sex: Female
  Weight: 57.1532 kg

DRUGS (3)
  1. VINORELBINE [Suspect]
     Indication: ADENOCARCINOMA
     Dosage: 25MG/M2 D 1,8,15 Q 28 D IV
     Route: 042
     Dates: start: 20080131
  2. VINORELBINE [Suspect]
     Indication: METASTASIS
     Dosage: 25MG/M2 D 1,8,15 Q 28 D IV
     Route: 042
     Dates: start: 20080131
  3. LAPATINIB 1500MG [Suspect]
     Indication: METASTATIC NEOPLASM
     Dosage: 1500MG DAILY P.O.
     Route: 048
     Dates: start: 20080131

REACTIONS (8)
  - BLOOD PHOSPHORUS INCREASED [None]
  - CONFUSIONAL STATE [None]
  - FATIGUE [None]
  - HYPERCALCAEMIA [None]
  - HYPONATRAEMIA [None]
  - HYPOPHOSPHATAEMIA [None]
  - LABORATORY TEST ABNORMAL [None]
  - URINARY INCONTINENCE [None]
